FAERS Safety Report 7201426-3 (Version None)
Quarter: 2010Q4

REPORT INFORMATION
  Report Type: 
  Country: None (occurrence: None)
  Receive Date: 20101229
  Receipt Date: 20100713
  Transmission Date: 20110411
  Serious: Yes (Other)
  Sender: FDA-Public Use
  Company Number: PHHY2010DE47309

PATIENT
  Age: 50 Year
  Sex: Male

DRUGS (3)
  1. BENAZEPRIL [Suspect]
     Indication: PROTEINURIA
     Dosage: UNK
  2. SIROLIMUS [Interacting]
     Indication: IMMUNOSUPPRESSION
  3. METHYLPREDNISOLONE [Concomitant]
     Indication: IMMUNOSUPPRESSION
     Dosage: 2 MG DAILY, 4 MG EVERY OTHER DAY

REACTIONS (3)
  - ANGIOEDEMA [None]
  - LIP SWELLING [None]
  - SWELLING FACE [None]
